FAERS Safety Report 15327650 (Version 1)
Quarter: 2018Q3

REPORT INFORMATION
  Report Type: Spontaneous
  Country: FR (occurrence: FR)
  Receive Date: 20180828
  Receipt Date: 20180828
  Transmission Date: 20181010
  Serious: Yes (Hospitalization)
  Sender: FDA-Public Use
  Company Number: FR-009507513-1808FRA009181

PATIENT
  Age: 88 Year
  Sex: Female
  Weight: 71 kg

DRUGS (1)
  1. PEMBROLIZUMAB. [Suspect]
     Active Substance: PEMBROLIZUMAB
     Dosage: 2 MG/KG, Q3W
     Route: 042
     Dates: start: 20150925, end: 20151015

REACTIONS (2)
  - Musculoskeletal pain [Recovered/Resolved]
  - Polymyalgia rheumatica [Recovered/Resolved]

NARRATIVE: CASE EVENT DATE: 20150926
